FAERS Safety Report 9099721 (Version 3)
Quarter: 2013Q4

REPORT INFORMATION
  Report Type: Spontaneous
  Country: US (occurrence: US)
  Receive Date: 20130214
  Receipt Date: 20131004
  Transmission Date: 20140711
  Serious: Yes (Other)
  Sender: FDA-Public Use
  Company Number: US-B.I. PHARMACEUTICALS,INC./RIDGEFIELD-2013-BI-03810BP

PATIENT
  Age: 75 Year
  Sex: Male
  Weight: 95.25 kg

DRUGS (6)
  1. PRADAXA [Suspect]
     Indication: ANTICOAGULANT THERAPY
     Dosage: 150 MG
     Route: 048
     Dates: start: 20110503, end: 20111129
  2. GEMFIBROZIL [Concomitant]
  3. ZOLPIDEM [Concomitant]
  4. FUROSEMIDE [Concomitant]
  5. ANUCORT HC [Concomitant]
  6. ACETYLCYSTEINE [Concomitant]

REACTIONS (2)
  - Cardiac disorder [Unknown]
  - Cerebral haemorrhage [Unknown]
